FAERS Safety Report 10097556 (Version 2)
Quarter: 2014Q2

REPORT INFORMATION
  Report Type: Spontaneous
  Country: US (occurrence: US)
  Receive Date: 20140423
  Receipt Date: 20140509
  Transmission Date: 20141212
  Serious: Yes (Hospitalization, Other)
  Sender: FDA-Public Use
  Company Number: US-BIOGENIDEC-2014BI037915

PATIENT
  Sex: Female

DRUGS (1)
  1. AVONEX [Suspect]
     Indication: MULTIPLE SCLEROSIS
     Route: 030
     Dates: start: 20140329, end: 20140410

REACTIONS (7)
  - Urinary tract infection [Recovered/Resolved]
  - Dehydration [Unknown]
  - Sarcoidosis [Unknown]
  - Tachycardia [Unknown]
  - Multiple sclerosis relapse [Recovered/Resolved]
  - Rash [Recovered/Resolved]
  - Drug ineffective [Recovered/Resolved]
